FAERS Safety Report 24396967 (Version 1)
Quarter: 2024Q4

REPORT INFORMATION
  Report Type: Spontaneous
  Country: US (occurrence: None)
  Receive Date: 20241003
  Receipt Date: 20241003
  Transmission Date: 20250115
  Serious: No
  Sender: Public
  Company Number: None

PATIENT
  Age: 20 Year
  Sex: Female
  Weight: 63 kg

DRUGS (1)
  1. ZOLOFT [Suspect]
     Active Substance: SERTRALINE HYDROCHLORIDE
     Indication: Anxiety
     Dosage: OTHER QUANTITY : 30 ML;?FREQUENCY : DAILY;?
     Route: 048
     Dates: start: 20241002, end: 20241002

REACTIONS (5)
  - Pharyngeal paraesthesia [None]
  - Throat irritation [None]
  - Oral discomfort [None]
  - Paraesthesia oral [None]
  - Vomiting [None]

NARRATIVE: CASE EVENT DATE: 20241002
